FAERS Safety Report 4989566-0 (Version None)
Quarter: 2006Q2

REPORT INFORMATION
  Report Type: 
  Country: None (occurrence: None)
  Receive Date: 20060426
  Receipt Date: 20060419
  Transmission Date: 20061013
  Serious: Yes (Hospitalization, Other)
  Sender: FDA-Public Use
  Company Number: 2006053640

PATIENT
  Sex: Female

DRUGS (3)
  1. LYRICA [Suspect]
     Indication: DIABETIC NEUROPATHY
     Dosage: ORAL
     Route: 048
     Dates: start: 20050101
  2. ASPIRIN [Concomitant]
  3. PREDNISONE TAB [Concomitant]

REACTIONS (2)
  - ATRIAL FIBRILLATION [None]
  - CONTUSION [None]
